FAERS Safety Report 6585040-9 (Version None)
Quarter: 2010Q1

REPORT INFORMATION
  Report Type: 
  Country: None (occurrence: None)
  Receive Date: 20100217
  Receipt Date: 20100208
  Transmission Date: 20100710
  Serious: Yes (Other)
  Sender: FDA-Public Use
  Company Number: US-ROCHE-668182

PATIENT
  Sex: Male

DRUGS (2)
  1. PEGASYS [Suspect]
     Indication: HEPATITIS C
     Dosage: PRE-FILLED SYRINGE
     Route: 065
     Dates: start: 20090930
  2. COPEGUS [Suspect]
     Indication: HEPATITIS C
     Dosage: DIVIDED DOSES.
     Route: 065
     Dates: start: 20090930

REACTIONS (6)
  - EYE DISORDER [None]
  - INFLUENZA LIKE ILLNESS [None]
  - MACULAR DEGENERATION [None]
  - MACULAR OEDEMA [None]
  - RASH MACULAR [None]
  - VISION BLURRED [None]
